FAERS Safety Report 15397620 (Version 2)
Quarter: 2018Q4

REPORT INFORMATION
  Report Type: Report from Study
  Country: US (occurrence: US)
  Receive Date: 20180918
  Receipt Date: 20181001
  Transmission Date: 20190204
  Serious: Yes (Death, Hospitalization)
  Sender: FDA-Public Use
  Company Number: US-BAUSCH-BL-2018-025564

PATIENT
  Sex: Male
  Weight: 92.62 kg

DRUGS (1)
  1. XIFAXAN [Suspect]
     Active Substance: RIFAXIMIN
     Indication: HEPATIC ENCEPHALOPATHY
     Dosage: SOMETIME IN 2015
     Route: 048
     Dates: start: 2015

REACTIONS (4)
  - Hepatitis C [Fatal]
  - Renal failure [Fatal]
  - Pulmonary oedema [Fatal]
  - Hepatic cirrhosis [Fatal]
